APPROVED DRUG PRODUCT: TETRABENAZINE
Active Ingredient: TETRABENAZINE
Strength: 12.5MG
Dosage Form/Route: TABLET;ORAL
Application: A206129 | Product #001
Applicant: SUN PHARMACEUTICAL INDUSTRIES LTD
Approved: Aug 17, 2015 | RLD: No | RS: No | Type: DISCN